FAERS Safety Report 17817262 (Version 1)
Quarter: 2020Q2

REPORT INFORMATION
  Report Type: Spontaneous
  Country: US (occurrence: US)
  Receive Date: 20200522
  Receipt Date: 20200522
  Transmission Date: 20200714
  Serious: No
  Sender: FDA-Public Use
  Company Number: US-CELGENEUS-USA-20200506636

PATIENT
  Age: 56 Year
  Sex: Male

DRUGS (7)
  1. OTEZLA [Suspect]
     Active Substance: APREMILAST
     Dosage: 20 MILLIGRAM
     Route: 048
     Dates: start: 202005
  2. OTEZLA [Suspect]
     Active Substance: APREMILAST
     Dosage: 20MG AM AND 30 MG EVENING
     Route: 048
     Dates: start: 202005
  3. OTEZLA [Suspect]
     Active Substance: APREMILAST
     Indication: PSORIASIS
     Dosage: 10 MILLIGRAM
     Route: 048
     Dates: start: 202005
  4. OTEZLA [Suspect]
     Active Substance: APREMILAST
     Dosage: 20MG AM AND 30 MG EVENING
     Route: 048
     Dates: start: 202005
  5. OTEZLA [Suspect]
     Active Substance: APREMILAST
     Dosage: 40 MILLIGRAM
     Route: 048
     Dates: start: 202005
  6. OTEZLA [Suspect]
     Active Substance: APREMILAST
     Dosage: 60 MILLIGRAM
     Route: 048
     Dates: start: 202005
  7. OTEZLA [Suspect]
     Active Substance: APREMILAST
     Dosage: 10 MG MORNING AND 20 MG EVENING
     Route: 048
     Dates: start: 202005

REACTIONS (3)
  - Feeling cold [Unknown]
  - Tremor [Unknown]
  - Depression [Unknown]

NARRATIVE: CASE EVENT DATE: 202005
